FAERS Safety Report 13795527 (Version 3)
Quarter: 2018Q2

REPORT INFORMATION
  Report Type: Not Available
  Country: US (occurrence: US)
  Receive Date: 20170726
  Receipt Date: 20180420
  Transmission Date: 20180711
  Serious: No
  Sender: FDA-Public Use
  Company Number: US-NEUROCRINE BIOSCIENCES INC.-2017NBI00261

PATIENT
  Age: 46 Year
  Sex: Female
  Weight: 108.96 kg

DRUGS (26)
  1. FLUTICASONE. [Concomitant]
     Active Substance: FLUTICASONE
     Dosage: 1 SPRAY IN EACH NOSTRIL ROUTE DAILY
  2. LOSARTAN. [Concomitant]
     Active Substance: LOSARTAN
  3. MAGNESIUM CITRATE. [Concomitant]
     Active Substance: MAGNESIUM CITRATE
     Dosage: 1.745 GM/30 ML
     Route: 048
  4. METOPROLOL. [Concomitant]
     Active Substance: METOPROLOL
     Dosage: EVERY MORNING
     Route: 048
  5. ONDANSETRON [Concomitant]
     Active Substance: ONDANSETRON
     Indication: NAUSEA
     Dosage: AS NEEDED
     Route: 048
  6. PANTOPRAZOLE [Concomitant]
     Active Substance: PANTOPRAZOLE
     Route: 048
  7. ALBUTEROL (PROAIR HFA) [Concomitant]
     Indication: WHEEZING
     Dosage: INHALE 2 PUFFS AS NEEDED
  8. IPRATROPIUM [Concomitant]
     Active Substance: IPRATROPIUM
     Indication: ASTHMA
     Dosage: 0.02% ,4 TIMES DAILY AS NEEDED
  9. MONTELUKAST [Concomitant]
     Active Substance: MONTELUKAST SODIUM
     Route: 048
  10. PRAVASTATIN. [Concomitant]
     Active Substance: PRAVASTATIN
     Route: 048
  11. INGREZZA [Suspect]
     Active Substance: VALBENAZINE
     Indication: DYSKINESIA
     Route: 048
     Dates: start: 201705, end: 20170528
  12. INGREZZA [Suspect]
     Active Substance: VALBENAZINE
     Route: 048
     Dates: start: 201705, end: 201705
  13. ALBUTEROL (PROVENTIL) [Concomitant]
     Indication: WHEEZING
     Dosage: 1 VIAL VIA NEBULIZER AS NEEDED , 2.5 MG/ 3 ML 0.083% NEBULIZER SOLUTION
  14. ESTRADIOL (CLIMARA) [Concomitant]
     Dosage: PATCH
  15. LINACLOTIDE [Concomitant]
     Active Substance: LINACLOTIDE
     Route: 048
  16. LURASIDONE [Concomitant]
     Active Substance: LURASIDONE
     Route: 048
  17. INGREZZA [Suspect]
     Active Substance: VALBENAZINE
     Indication: TARDIVE DYSKINESIA
     Route: 048
     Dates: start: 20170630
  18. AMANTADINE (SYMMETREL) [Concomitant]
     Dosage: 1 CAPSULE TWICE A DAY 1 WEEK THEN 1 CAPSULE 3 TIMES A DAY
  19. GABAPENTIN. [Concomitant]
     Active Substance: GABAPENTIN
  20. LORAZEPAM. [Concomitant]
     Active Substance: LORAZEPAM
     Route: 048
  21. INGREZZA [Suspect]
     Active Substance: VALBENAZINE
     Route: 048
     Dates: start: 201704
  22. BENZONATATE (TESSALON) [Concomitant]
     Indication: COUGH
     Dosage: AS NEEDED
  23. PIOGLITAZONE. [Concomitant]
     Active Substance: PIOGLITAZONE
     Route: 048
  24. TRIAMCINOLONE [Concomitant]
     Active Substance: TRIAMCINOLONE
     Dosage: 0.1% CREAM
  25. FUROSEMIDE. [Concomitant]
     Active Substance: FUROSEMIDE
     Indication: SWELLING
     Dosage: OCULAR USE
  26. IPRATROPIUM [Concomitant]
     Active Substance: IPRATROPIUM
     Indication: WHEEZING

REACTIONS (3)
  - Hallucination [Recovered/Resolved]
  - Dyspnoea [Recovered/Resolved]
  - Cough [Recovered/Resolved]

NARRATIVE: CASE EVENT DATE: 201704
